FAERS Safety Report 21583235 (Version 1)
Quarter: 2022Q4

REPORT INFORMATION
  Report Type: Spontaneous
  Country: DE (occurrence: DE)
  Receive Date: 20221111
  Receipt Date: 20221111
  Transmission Date: 20230112
  Serious: Yes (Hospitalization)
  Sender: FDA-Public Use
  Company Number: DE-SERVIER-S22011402

PATIENT

DRUGS (1)
  1. IVOSIDENIB [Suspect]
     Active Substance: IVOSIDENIB
     Indication: Cholangiocarcinoma
     Dosage: UNK
     Route: 048

REACTIONS (3)
  - Hyponatraemia [Recovered/Resolved]
  - Hyperkalaemia [Recovered/Resolved]
  - Peritonitis [Recovered/Resolved]

NARRATIVE: CASE EVENT DATE: 20221028
